FAERS Safety Report 20962278 (Version 1)
Quarter: 2022Q2

REPORT INFORMATION
  Report Type: Spontaneous
  Country: CN (occurrence: CN)
  Receive Date: 20220615
  Receipt Date: 20220615
  Transmission Date: 20220721
  Serious: Yes (Hospitalization, Other)
  Sender: FDA-Public Use
  Company Number: CN-BAUSCH-BL-2022-014502

PATIENT
  Age: 40 Year
  Sex: Female

DRUGS (3)
  1. DILTIAZEM HYDROCHLORIDE [Suspect]
     Active Substance: DILTIAZEM HYDROCHLORIDE
     Indication: Suicide attempt
     Dosage: UNKNOWN AMOUNTS
     Route: 048
     Dates: start: 201909
  2. AMLODIPINE [Suspect]
     Active Substance: AMLODIPINE BESYLATE
     Indication: Suicide attempt
     Route: 065
  3. LEVOTHYROXINE SODIUM [Suspect]
     Active Substance: LEVOTHYROXINE SODIUM
     Indication: Suicide attempt
     Dosage: AT LEAST 15,000 MICROGRAMS
     Route: 065

REACTIONS (8)
  - Loss of consciousness [Recovered/Resolved]
  - Thyroid hormones increased [Recovered/Resolved]
  - Thyrotoxic crisis [Recovered/Resolved]
  - Hyperthyroidism [Recovered/Resolved]
  - Hyperhidrosis [Recovered/Resolved]
  - Vomiting [Recovered/Resolved]
  - Dyspnoea [Recovered/Resolved]
  - Hypotension [Recovered/Resolved]

NARRATIVE: CASE EVENT DATE: 20190915
